FAERS Safety Report 24460844 (Version 1)
Quarter: 2024Q4

REPORT INFORMATION
  Report Type: Report from Study
  Country: US (occurrence: US)
  Receive Date: 20241018
  Receipt Date: 20241018
  Transmission Date: 20250114
  Serious: No
  Sender: ROCHE
  Company Number: US-ROCHE-3573954

PATIENT
  Age: 69 Year
  Sex: Female

DRUGS (2)
  1. RITUXAN [Suspect]
     Active Substance: RITUXIMAB
     Indication: Nephritic syndrome
     Dosage: VIAL, INFUSE 1000MG INTRAVENOUSLY ON WEEK(S) 0 AND WEEK(S) 2 EVERY 6 MONTH(S)
     Route: 042
  2. RITUXAN [Suspect]
     Active Substance: RITUXIMAB
     Indication: Glomerulonephritis membranous

REACTIONS (2)
  - Off label use [Unknown]
  - No adverse event [Unknown]
